FAERS Safety Report 9420394 (Version 1)
Quarter: 2013Q3

REPORT INFORMATION
  Report Type: Spontaneous
  Country: US (occurrence: US)
  Receive Date: 20130725
  Receipt Date: 20130725
  Transmission Date: 20140515
  Serious: No
  Sender: FDA-Public Use
  Company Number: US-ABBOTT-13P-163-1036917-00

PATIENT
  Sex: Female
  Weight: 53.57 kg

DRUGS (6)
  1. SYNTHROID [Suspect]
     Indication: THYROIDECTOMY
     Dates: start: 20121225
  2. LEVOXYL [Suspect]
     Indication: THYROIDECTOMY
     Dates: start: 20121003, end: 20121224
  3. HYDROCHLOROTHIAZIDE [Concomitant]
     Indication: FLUID RETENTION
  4. PROPANOLOL [Concomitant]
     Indication: HYPERTENSION
  5. HUMALOG [Concomitant]
     Indication: TYPE 1 DIABETES MELLITUS
  6. LANTUS [Concomitant]
     Indication: TYPE 1 DIABETES MELLITUS

REACTIONS (7)
  - Weight increased [Not Recovered/Not Resolved]
  - Alopecia [Not Recovered/Not Resolved]
  - Temperature intolerance [Recovering/Resolving]
  - Dry skin [Not Recovered/Not Resolved]
  - Muscle spasms [Recovering/Resolving]
  - Onychoclasis [Recovering/Resolving]
  - Swelling [Not Recovered/Not Resolved]
